FAERS Safety Report 10963454 (Version 1)
Quarter: 2015Q1

REPORT INFORMATION
  Report Type: Spontaneous
  Country: US (occurrence: None)
  Receive Date: 20150326
  Receipt Date: 20150326
  Transmission Date: 20150721
  Serious: No
  Sender: FDA-Public Use
  Company Number: PR 5833

PATIENT
  Age: 42 Year
  Sex: Female

DRUGS (2)
  1. ZOFRAN [Concomitant]
     Active Substance: ONDANSETRON HYDROCHLORIDE
  2. METHYLERGONOVINE MALEATE. [Suspect]
     Active Substance: METHYLERGONOVINE MALEATE
     Indication: HAEMORRHAGE

REACTIONS (4)
  - Angioedema [None]
  - Hypersensitivity [None]
  - Opisthotonus [None]
  - Oculogyric crisis [None]
